FAERS Safety Report 14744831 (Version 1)
Quarter: 2018Q2

REPORT INFORMATION
  Report Type: Report from Study
  Country: US (occurrence: US)
  Receive Date: 20180411
  Receipt Date: 20180411
  Transmission Date: 20180711
  Serious: No
  Sender: FDA-Public Use
  Company Number: US-AMGEN-USASL2018046915

PATIENT
  Age: 70 Year
  Sex: Female

DRUGS (1)
  1. ENBREL [Suspect]
     Active Substance: ETANERCEPT
     Indication: PSORIATIC ARTHROPATHY
     Dosage: 50 MG, UNK
     Route: 065

REACTIONS (7)
  - Rash [Unknown]
  - Injection site reaction [Unknown]
  - Chills [Unknown]
  - Diarrhoea [Unknown]
  - Pyrexia [Unknown]
  - Influenza like illness [Unknown]
  - Vomiting [Unknown]
